FAERS Safety Report 5250443-1 (Version None)
Quarter: 2007Q1

REPORT INFORMATION
  Report Type: 
  Country: None (occurrence: None)
  Receive Date: 20070228
  Receipt Date: 20060417
  Transmission Date: 20070707
  Serious: No
  Sender: FDA-Public Use
  Company Number: US-GLAXOSMITHKLINE-A0601958A

PATIENT
  Age: 44 Year
  Sex: Female

DRUGS (4)
  1. LAMICTAL [Suspect]
     Indication: DEPRESSION
     Dosage: 200MG PER DAY
     Route: 048
     Dates: start: 20060220, end: 20060416
  2. CELEXA [Concomitant]
  3. TEMAZEPAM [Concomitant]
  4. SEASONALE [Concomitant]

REACTIONS (3)
  - FATIGUE [None]
  - RASH [None]
  - RASH ERYTHEMATOUS [None]
